FAERS Safety Report 10251942 (Version 2)
Quarter: 2014Q2

REPORT INFORMATION
  Report Type: Report from Study
  Country: US (occurrence: None)
  Receive Date: 20140619
  Receipt Date: 20140627
  Transmission Date: 20141212
  Serious: Yes (Death, Other)
  Sender: FDA-Public Use
  Company Number: 2014-19763

PATIENT
  Age: 91 Year
  Sex: 0

DRUGS (1)
  1. EYLEA [Suspect]
     Indication: PRODUCT USED FOR UNKNOWN INDICATION
     Dates: start: 20130222, end: 20130222

REACTIONS (1)
  - Death [None]
